FAERS Safety Report 7754744-4 (Version None)
Quarter: 2011Q3

REPORT INFORMATION
  Report Type: 
  Country: None (occurrence: None)
  Receive Date: 20110916
  Receipt Date: 20110902
  Transmission Date: 20111222
  Serious: Yes (Other)
  Sender: FDA-Public Use
  Company Number: FR-MYLANLABS-2011S1018796

PATIENT
  Age: 78 Year
  Sex: Female

DRUGS (4)
  1. ESCITALOPRAM [Concomitant]
     Dosage: 15 MG/DAY
     Route: 065
  2. ERLOTINIB HYDROCHLORIDE [Interacting]
     Indication: LUNG NEOPLASM MALIGNANT
     Dosage: 150 MG/DAY
     Route: 065
  3. ALPRAZOLAM [Concomitant]
     Route: 065
  4. FENOFIBRATE [Suspect]
     Dosage: 200 MG/DAY
     Route: 065

REACTIONS (2)
  - DRUG INTERACTION [None]
  - DRUG LEVEL DECREASED [None]
